FAERS Safety Report 17965838 (Version 3)
Quarter: 2020Q3

REPORT INFORMATION
  Report Type: Report from Study
  Country: DE (occurrence: DE)
  Receive Date: 20200701
  Receipt Date: 20200807
  Transmission Date: 20201103
  Serious: Yes (Hospitalization)
  Sender: FDA-Public Use
  Company Number: DE-ROCHE-2633635

PATIENT
  Age: 63 Year
  Sex: Male
  Weight: 72 kg

DRUGS (13)
  1. OXALIPLATIN. [Suspect]
     Active Substance: OXALIPLATIN
     Indication: GASTRIC CANCER
     Dosage: LAST DOSE 13/JUN/2020?DAY 1 Q2W: 85 MG/M2 IV OVER 2 HOURS (AS PER PROTOCOL)
     Route: 042
  2. TORASEMID [Concomitant]
     Active Substance: TORSEMIDE
  3. INNOHEP [Concomitant]
     Active Substance: TINZAPARIN SODIUM
     Route: 058
  4. FLUOROURACIL. [Suspect]
     Active Substance: FLUOROURACIL
     Indication: GASTRIC CANCER
     Dosage: LAST DOSE 13/JUN/2020?DAY 1 Q2W: 2600 MG/M2 IV OVER 24 HOURS (AS PER PROTOCOL)
     Route: 042
  5. METFORMIN [Concomitant]
     Active Substance: METFORMIN HYDROCHLORIDE
  6. ATEZOLIZUMAB. [Suspect]
     Active Substance: ATEZOLIZUMAB
     Indication: GASTRIC CANCER
     Dosage: LAST DOSE 27/JUN/2020?DAY 1 Q2W: 840 MG IV OVER 1 HOUR (4 CYCLES PERIOPERATIVE WITH FLOT) + DAY 1 Q3
     Route: 042
  7. LEUCOVORIN. [Suspect]
     Active Substance: LEUCOVORIN
     Indication: GASTRIC CANCER
     Dosage: LAST DOSE 13/JUN/2020?DAY 1 Q2W: 200 MG/M2 IV OVER 1 HOUR (AS PER PROTOCOL)
     Route: 042
  8. INSULIN GLARGINE [Concomitant]
     Active Substance: INSULIN GLARGINE
  9. PANTOZOL [Concomitant]
     Active Substance: PANTOPRAZOLE SODIUM
  10. RAMIPRIL. [Concomitant]
     Active Substance: RAMIPRIL
  11. DOCETAXEL. [Suspect]
     Active Substance: DOCETAXEL
     Indication: GASTRIC CANCER
     Dosage: LAST DOSE 27/JUN/2020?DAY 1 Q2W: 50 MG/M2 IV OVER 1 HOUR (AS PER PROTOCOL)
     Route: 042
  12. AMIODARON [Concomitant]
     Active Substance: AMIODARONE
  13. METOPROLOL. [Concomitant]
     Active Substance: METOPROLOL

REACTIONS (1)
  - Oesophageal carcinoma [Recovered/Resolved]

NARRATIVE: CASE EVENT DATE: 20200627
